FAERS Safety Report 4413568-6 (Version None)
Quarter: 2004Q3

REPORT INFORMATION
  Report Type: 
  Country: None (occurrence: None)
  Receive Date: 20040729
  Receipt Date: 20040721
  Transmission Date: 20050211
  Serious: Yes (Life-Threatening, Hospitalization, Disabling)
  Sender: FDA-Public Use
  Company Number: 2004-07-1169

PATIENT
  Age: 81 Year
  Sex: Male

DRUGS (1)
  1. FLUCINOM            (FLUTAMIDE) [Suspect]
     Indication: PROSTATE CANCER
     Dosage: 750 MG ORAL
     Route: 048
     Dates: end: 20040601

REACTIONS (1)
  - CEREBRAL HAEMORRHAGE [None]
